FAERS Safety Report 6292227-1 (Version None)
Quarter: 2009Q3

REPORT INFORMATION
  Report Type: 
  Country: None (occurrence: None)
  Receive Date: 20090731
  Receipt Date: 20090727
  Transmission Date: 20100115
  Serious: Yes (Death, Other)
  Sender: FDA-Public Use
  Company Number: PHHY2009JP24615

PATIENT
  Sex: Male

DRUGS (11)
  1. ZOMETA [Suspect]
     Indication: METASTASES TO BONE
     Dosage: 4 MG/ ADMINISTRATION EVERY MONTH
     Route: 042
     Dates: start: 20070807, end: 20081118
  2. TAXOTERE [Concomitant]
     Dosage: 35 MG, UNK
     Route: 042
     Dates: start: 20071106, end: 20081118
  3. DEXAMETHASONE [Concomitant]
     Dosage: 8 MG, UNK
     Route: 042
     Dates: start: 20071106, end: 20081118
  4. KYTRIL [Concomitant]
     Dosage: 3 MG, UNK
     Route: 042
     Dates: start: 20071106, end: 20081118
  5. INNOLET N [Concomitant]
     Dosage: 6 DF, UNK
     Route: 042
     Dates: start: 20071018
  6. INNOLET N [Concomitant]
     Dosage: 12 DF, UNK
     Route: 042
     Dates: end: 20081202
  7. PREDNISOLONE [Concomitant]
     Dosage: 5 MG, UNK
     Route: 048
     Dates: start: 20070706, end: 20081220
  8. ITOROL [Concomitant]
     Dosage: 40 MG, UNK
     Route: 048
     Dates: start: 20000815, end: 20071104
  9. NORVASC [Concomitant]
     Dosage: 5 MG, UNK
     Route: 048
     Dates: start: 20010406, end: 20071104
  10. HUMACART-N [Concomitant]
     Dosage: 16 DF, UNK
     Route: 042
     Dates: start: 20081203, end: 20081220
  11. AZITHROMYCIN [Concomitant]
     Dosage: 2 TABLETS DAILY
     Dates: start: 20080623

REACTIONS (14)
  - C-REACTIVE PROTEIN INCREASED [None]
  - GINGIVAL SWELLING [None]
  - HAEMATOCRIT DECREASED [None]
  - HAEMOGLOBIN DECREASED [None]
  - HYPERGLYCAEMIA [None]
  - INFLAMMATION [None]
  - LOOSE TOOTH [None]
  - LYMPHOCYTE COUNT DECREASED [None]
  - OSTEONECROSIS [None]
  - PAIN [None]
  - PERIODONTITIS [None]
  - PURULENT DISCHARGE [None]
  - RASH PUSTULAR [None]
  - RESPIRATORY FAILURE [None]
